FAERS Safety Report 19587558 (Version 1)
Quarter: 2021Q3

REPORT INFORMATION
  Report Type: Spontaneous
  Country: US (occurrence: US)
  Receive Date: 20210721
  Receipt Date: 20210721
  Transmission Date: 20211014
  Serious: Yes (Other)
  Sender: FDA-Public Use
  Company Number: None

PATIENT
  Age: 75 Year
  Sex: Female
  Weight: 96.75 kg

DRUGS (8)
  1. LOSORTAN [Concomitant]
  2. NEUTROGENA SUNSCREEN NOS [Suspect]
     Active Substance: AVOBENZONE\HOMOSALATE\OCTISALATE\OCTOCRYLENE OR AVOBENZONE\HOMOSALATE\OCTISALATE\OCTOCRYLENE\OXYBENZONE
     Indication: PROPHYLAXIS AGAINST SOLAR RADIATION
     Dosage: ?QUANTITY:10 SPRAY(S);?OTHER FREQUENCY:WHEN EXPOSED  SUN;?
     Route: 061
     Dates: start: 20210601, end: 20210712
  3. VITAMIN B12 [Concomitant]
     Active Substance: CYANOCOBALAMIN
  4. VITAMIN D3 [Concomitant]
     Active Substance: CHOLECALCIFEROL
  5. BIOTIN [Concomitant]
     Active Substance: BIOTIN
  6. LIVALO [Concomitant]
     Active Substance: PITAVASTATIN CALCIUM
  7. VITAMIN C [Concomitant]
     Active Substance: ASCORBIC ACID
  8. COENZYME Q10 [Concomitant]
     Active Substance: DIETARY SUPPLEMENT\UBIDECARENONE

REACTIONS (5)
  - Product contamination chemical [None]
  - Skin disorder [None]
  - Rash [None]
  - Multiple chemical sensitivity [None]
  - Condition aggravated [None]

NARRATIVE: CASE EVENT DATE: 20210705
